FAERS Safety Report 10977826 (Version 1)
Quarter: 2015Q1

REPORT INFORMATION
  Report Type: Spontaneous
  Country: US (occurrence: None)
  Receive Date: 20150331
  Receipt Date: 20150331
  Transmission Date: 20150721
  Serious: Yes (Other)
  Sender: FDA-Public Use
  Company Number: 2015AKN00162

PATIENT
  Age: 18 Year
  Sex: Female
  Weight: 52.6 kg

DRUGS (1)
  1. MYORISAN [Suspect]
     Active Substance: ISOTRETINOIN
     Indication: ACNE
     Route: 048
     Dates: start: 201412, end: 20150123

REACTIONS (1)
  - Pertussis [None]

NARRATIVE: CASE EVENT DATE: 201503
